FAERS Safety Report 13931936 (Version 1)
Quarter: 2017Q3

REPORT INFORMATION
  Report Type: Spontaneous
  Country: CA (occurrence: CA)
  Receive Date: 20170904
  Receipt Date: 20170904
  Transmission Date: 20171127
  Serious: Yes (Other)
  Sender: FDA-Public Use
  Company Number: CA-TEVA-801669ACC

PATIENT
  Age: 51 Year
  Sex: Female
  Weight: 80 kg

DRUGS (10)
  1. LEFLUNOMIDE. [Suspect]
     Active Substance: LEFLUNOMIDE
     Indication: RHEUMATOID ARTHRITIS
     Dosage: 20 MILLIGRAM DAILY;
     Route: 048
  2. HYDROXYCHLOROQUINE [Concomitant]
     Active Substance: HYDROXYCHLOROQUINE
  3. ATENOLOL. [Concomitant]
     Active Substance: ATENOLOL
  4. CALCIUM [Concomitant]
     Active Substance: CALCIUM
  5. NAPROXEN. [Concomitant]
     Active Substance: NAPROXEN
  6. PREDNISONE. [Concomitant]
     Active Substance: PREDNISONE
  7. TETRABENAZINE. [Concomitant]
     Active Substance: TETRABENAZINE
  8. VITAMIN D [Concomitant]
     Active Substance: CHOLECALCIFEROL
  9. CLONAZEPAM. [Concomitant]
     Active Substance: CLONAZEPAM
  10. HYDROXYZINE [Concomitant]
     Active Substance: HYDROXYZINE HYDROCHLORIDE

REACTIONS (2)
  - Haematochezia [Recovered/Resolved]
  - Diarrhoea [Recovered/Resolved]
